FAERS Safety Report 10907081 (Version 1)
Quarter: 2015Q1

REPORT INFORMATION
  Report Type: Spontaneous
  Country: CH (occurrence: CH)
  Receive Date: 20150312
  Receipt Date: 20150312
  Transmission Date: 20150721
  Serious: Yes (Other)
  Sender: FDA-Public Use
  Company Number: CH-ASTRAZENECA-2015SE22869

PATIENT
  Age: 51 Year
  Sex: Female

DRUGS (17)
  1. NEXIUM [Suspect]
     Active Substance: ESOMEPRAZOLE MAGNESIUM
     Route: 048
     Dates: end: 20140926
  2. TEMESTA [Suspect]
     Active Substance: LORAZEPAM
     Route: 065
     Dates: start: 20140922
  3. TIMONIL [Interacting]
     Active Substance: CARBAMAZEPINE
     Route: 065
     Dates: end: 20140926
  4. SEROPRAM [Suspect]
     Active Substance: CITALOPRAM HYDROBROMIDE
     Route: 065
     Dates: start: 20140828, end: 20140901
  5. MEDROL [Concomitant]
     Active Substance: METHYLPREDNISOLONE
     Dates: start: 20140825, end: 20140901
  6. SEROPRAM [Suspect]
     Active Substance: CITALOPRAM HYDROBROMIDE
     Route: 065
     Dates: start: 20140901, end: 20140902
  7. SEROPRAM [Suspect]
     Active Substance: CITALOPRAM HYDROBROMIDE
     Route: 065
     Dates: start: 20140905, end: 20140906
  8. SEROPRAM [Suspect]
     Active Substance: CITALOPRAM HYDROBROMIDE
     Route: 065
     Dates: start: 20140906, end: 20140909
  9. SEROPRAM [Suspect]
     Active Substance: CITALOPRAM HYDROBROMIDE
     Route: 065
     Dates: start: 20140909, end: 20140926
  10. ACTONEL [Concomitant]
     Active Substance: RISEDRONATE SODIUM
     Dates: start: 20140825, end: 20140926
  11. TEMESTA [Suspect]
     Active Substance: LORAZEPAM
     Route: 065
     Dates: start: 20140825, end: 20140922
  12. LIORESAL [Concomitant]
     Active Substance: BACLOFEN
     Dates: start: 20140828, end: 20140926
  13. MEDROL [Concomitant]
     Active Substance: METHYLPREDNISOLONE
     Dates: start: 20140916, end: 20140930
  14. SEROPRAM [Suspect]
     Active Substance: CITALOPRAM HYDROBROMIDE
     Route: 065
     Dates: end: 20140828
  15. SEROPRAM [Suspect]
     Active Substance: CITALOPRAM HYDROBROMIDE
     Route: 065
     Dates: start: 20140902, end: 20140904
  16. MEDROL [Concomitant]
     Active Substance: METHYLPREDNISOLONE
     Dates: start: 20140901, end: 20140916
  17. SIRDALUD [Concomitant]
     Active Substance: TIZANIDINE
     Dates: start: 20140825, end: 20140926

REACTIONS (2)
  - Hyponatraemia [Recovered/Resolved]
  - Drug interaction [Unknown]

NARRATIVE: CASE EVENT DATE: 20140825
